FAERS Safety Report 7927308-7 (Version None)
Quarter: 2011Q4

REPORT INFORMATION
  Report Type: 
  Country: None (occurrence: None)
  Receive Date: 20111118
  Receipt Date: 20111110
  Transmission Date: 20120403
  Serious: Yes (Hospitalization)
  Sender: FDA-Public Use
  Company Number: PHHY2011JP55900

PATIENT
  Age: 70 Year
  Sex: Male

DRUGS (3)
  1. VALPROIC ACID [Concomitant]
     Route: 048
  2. DEPAKENE [Concomitant]
     Indication: GRAND MAL CONVULSION
     Dosage: 200 MG, UNK
     Route: 048
     Dates: start: 20100127
  3. TEGRETOL [Suspect]
     Indication: GRAND MAL CONVULSION
     Dosage: 200 MG DAILY
     Route: 048
     Dates: start: 20100127, end: 20100207

REACTIONS (4)
  - LIVER DISORDER [None]
  - RASH [None]
  - INFECTION SUSCEPTIBILITY INCREASED [None]
  - UPPER RESPIRATORY TRACT INFECTION [None]
